FAERS Safety Report 10037054 (Version 1)
Quarter: 2014Q1

REPORT INFORMATION
  Report Type: Spontaneous
  Country: US (occurrence: US)
  Receive Date: 20140326
  Receipt Date: 20140326
  Transmission Date: 20141002
  Serious: Yes (Hospitalization, Other)
  Sender: FDA-Public Use
  Company Number: US-DRREDDYS-USA/USA/14/0039074

PATIENT
  Age: 15 Year
  Sex: Male

DRUGS (1)
  1. IBUPROFEN [Suspect]
     Indication: MUSCLE STRAIN
     Dosage: 1000 MG 3 TO 4 TIMES A DAY
     Route: 065

REACTIONS (3)
  - Liver abscess [Recovered/Resolved]
  - Gastric fistula [Recovered/Resolved]
  - Gastric ulcer [Recovered/Resolved]
